FAERS Safety Report 10223251 (Version 2)
Quarter: 2014Q2

REPORT INFORMATION
  Report Type: Spontaneous
  Country: US (occurrence: None)
  Receive Date: 20140605
  Receipt Date: 20140612
  Transmission Date: 20141212
  Serious: Yes (Hospitalization, Other)
  Sender: FDA-Public Use
  Company Number: UNT-2014-001105

PATIENT
  Age: 35 Year
  Sex: Female
  Weight: 75.7 kg

DRUGS (6)
  1. REMODULIN [Suspect]
     Indication: PULMONARY ARTERIAL HYPERTENSION
     Dosage: 0.027 MG/KG/MIN
     Route: 041
     Dates: start: 20020830
  2. COUMADIN (WARFARIN SODIUM) [Concomitant]
  3. TRACLEER (BOSENTAN) [Concomitant]
  4. ADCIRCA (TADALAFIL) [Concomitant]
  5. REVATIO (SILDENAFIL CITRATE) [Concomitant]
  6. CIALIS (TADALAFIL) [Concomitant]

REACTIONS (3)
  - Asthma [None]
  - Herpes zoster [None]
  - Weight increased [None]
